FAERS Safety Report 8536398-2 (Version None)
Quarter: 2012Q3

REPORT INFORMATION
  Report Type: 
  Country: None (occurrence: None)
  Receive Date: 20120712
  Receipt Date: 20120703
  Transmission Date: 20120928
  Serious: Yes (Death)
  Sender: FDA-Public Use
  Company Number: ACO_30967_2012

PATIENT
  Sex: Male

DRUGS (4)
  1. SIMVASTATIN [Concomitant]
  2. AMPYRA [Suspect]
     Indication: PRODUCT USED FOR UNKNOWN INDICATION
     Dosage: 10 MG
  3. REBIF [Concomitant]
  4. LISINOPRIL [Concomitant]

REACTIONS (1)
  - DEATH [None]
